FAERS Safety Report 13881648 (Version 4)
Quarter: 2018Q3

REPORT INFORMATION
  Report Type: Report from Study
  Country: US (occurrence: US)
  Receive Date: 20170818
  Receipt Date: 20180806
  Transmission Date: 20181010
  Serious: Yes (Hospitalization, Other)
  Sender: FDA-Public Use
  Company Number: US-SA-2017SA119616

PATIENT
  Age: 55 Year
  Sex: Female
  Weight: 89.6 kg

DRUGS (35)
  1. CIPROFLOXACIN. [Concomitant]
     Active Substance: CIPROFLOXACIN
     Indication: NEUROGENIC BLADDER
     Dosage: 500 MG,UNK
     Route: 048
     Dates: start: 2015
  2. ERGOCALCIFEROL. [Concomitant]
     Active Substance: ERGOCALCIFEROL
     Indication: PROPHYLAXIS
     Dosage: 5000 IU,UNK
     Route: 048
     Dates: start: 2015
  3. HYDROXYZINE [Concomitant]
     Active Substance: HYDROXYZINE HYDROCHLORIDE
     Dosage: UNK UNK,UNK
     Route: 065
     Dates: start: 20170628
  4. DOXYCYCLINE. [Concomitant]
     Active Substance: DOXYCYCLINE
     Dosage: 200 MG,UNK
     Route: 048
     Dates: start: 20170628, end: 20170629
  5. FENTANYL. [Concomitant]
     Active Substance: FENTANYL
     Indication: PROPHYLAXIS
     Dosage: 50 UG,UNK
     Route: 042
     Dates: start: 20170629, end: 20170629
  6. BACLOFEN. [Concomitant]
     Active Substance: BACLOFEN
     Dosage: 10 MG,UNK
     Route: 048
     Dates: start: 20170628
  7. DIPHENHYDRAMINE. [Concomitant]
     Active Substance: DIPHENHYDRAMINE
     Indication: PROPHYLAXIS
     Dosage: 50 MG,UNK
     Route: 042
     Dates: start: 20170417, end: 20170421
  8. ALEMTUZUMAB [Suspect]
     Active Substance: ALEMTUZUMAB
     Indication: MULTIPLE SCLEROSIS RELAPSE
     Dosage: 12 MG,QD
     Route: 041
     Dates: start: 20170417, end: 20170421
  9. BACLOFEN. [Concomitant]
     Active Substance: BACLOFEN
     Indication: MUSCLE SPASTICITY
     Dosage: 10 MG,QD
     Route: 048
     Dates: start: 2013
  10. VALTREX [Concomitant]
     Active Substance: VALACYCLOVIR HYDROCHLORIDE
     Indication: HERPES SIMPLEX
     Dosage: 1 G,QD
     Route: 048
     Dates: start: 1988, end: 20170622
  11. FUROSEMIDE. [Concomitant]
     Active Substance: FUROSEMIDE
     Dosage: 20 MG,QD
     Route: 048
  12. SODIUM CHLORIDE. [Concomitant]
     Active Substance: SODIUM CHLORIDE
     Dosage: .9 %,UNK
     Route: 065
     Dates: start: 20170629, end: 20170629
  13. VANCOMYCIN [Concomitant]
     Active Substance: VANCOMYCIN
     Dosage: 1500 MG,UNK
     Route: 065
     Dates: start: 20170627
  14. POTASSIUM CHLORIDE. [Concomitant]
     Active Substance: POTASSIUM CHLORIDE
     Dosage: 40 MEQ,UNK
     Route: 048
     Dates: start: 20170628
  15. ACICLOVIR [Concomitant]
     Active Substance: ACYCLOVIR
     Dosage: 400 MG,UNK
     Route: 048
     Dates: start: 20170628
  16. CURCUMA LONGA [Concomitant]
     Active Substance: HERBALS\TURMERIC
     Indication: PROPHYLAXIS
     Dosage: 1 DF,UNK
     Route: 048
     Dates: start: 201703, end: 201708
  17. SODIUM CHLORIDE. [Concomitant]
     Active Substance: SODIUM CHLORIDE
     Dosage: .9 %,UNK
     Route: 065
     Dates: start: 20170627, end: 20170627
  18. OMEPRAZOLE. [Concomitant]
     Active Substance: OMEPRAZOLE
     Indication: PROPHYLAXIS
     Dosage: 80 MG,UNK
     Route: 048
     Dates: start: 20170628, end: 20170702
  19. POLYETHYLENE GLYCOL [Concomitant]
     Active Substance: POLYETHYLENE GLYCOLS
     Indication: PROPHYLAXIS
     Dosage: 119 G,UNK
     Route: 048
     Dates: start: 20170628, end: 20170628
  20. MIDAZOLAM [Concomitant]
     Active Substance: MIDAZOLAM HYDROCHLORIDE
     Indication: PROPHYLAXIS
     Dosage: 2.5 MG,UNK
     Route: 042
     Dates: start: 20170629, end: 20170629
  21. ALEVE [Concomitant]
     Active Substance: NAPROXEN SODIUM
     Indication: PAIN
     Dosage: 220 G,UNK
     Route: 048
     Dates: start: 2013
  22. ZANTAC [Concomitant]
     Active Substance: RANITIDINE HYDROCHLORIDE
     Indication: PROPHYLAXIS
     Dosage: 150 G,UNK
     Route: 048
     Dates: start: 20170414, end: 20170424
  23. METHYLPREDNISOLONE. [Concomitant]
     Active Substance: METHYLPREDNISOLONE
     Dosage: 500 MG,UNK
     Route: 042
     Dates: start: 20170420, end: 20170421
  24. ACICLOVIR [Concomitant]
     Active Substance: ACYCLOVIR
     Indication: PROPHYLAXIS
     Dosage: 400 MG,BID
     Route: 048
     Dates: start: 20170417
  25. CURCUMA LONGA [Concomitant]
     Active Substance: HERBALS\TURMERIC
     Dosage: 1 TABLET
     Route: 048
     Dates: start: 201801
  26. IBUPROFEN. [Concomitant]
     Active Substance: IBUPROFEN
     Indication: PROPHYLAXIS
     Dosage: 2400 MG,UNK
     Route: 048
     Dates: start: 20170417, end: 20170627
  27. SODIUM CHLORIDE. [Concomitant]
     Active Substance: SODIUM CHLORIDE
     Dosage: .9 %,UNK
     Route: 065
     Dates: start: 20170628, end: 20170628
  28. SODIUM CHLORIDE. [Concomitant]
     Active Substance: SODIUM CHLORIDE
     Dosage: .9 %,UNK
     Route: 065
     Dates: start: 20170630
  29. BACLOFEN. [Concomitant]
     Active Substance: BACLOFEN
     Dosage: 10 MG,TID
     Route: 048
  30. ZYRTEC [Concomitant]
     Active Substance: CETIRIZINE HYDROCHLORIDE
     Indication: PROPHYLAXIS
     Dosage: 10 G,UNK
     Route: 048
     Dates: start: 20170414, end: 20170424
  31. METHYLPREDNISOLONE. [Concomitant]
     Active Substance: METHYLPREDNISOLONE
     Indication: PROPHYLAXIS
     Dosage: 1000 MG,UNK
     Route: 042
     Dates: start: 20170417, end: 20170419
  32. BENADRYL [Concomitant]
     Active Substance: DIPHENHYDRAMINE HYDROCHLORIDE
     Dosage: 25 MG,UNK
     Route: 048
     Dates: start: 20170628
  33. ACETAMINOPHEN. [Concomitant]
     Active Substance: ACETAMINOPHEN
     Indication: PROPHYLAXIS
     Dosage: 2600 MG,UNK
     Route: 048
     Dates: start: 20170417, end: 20170421
  34. DOXYCYCLINE. [Concomitant]
     Active Substance: DOXYCYCLINE
     Indication: PROPHYLAXIS
     Dosage: 100 MG,UNK
     Route: 048
     Dates: start: 20160628
  35. HEPARIN [Concomitant]
     Active Substance: HEPARIN SODIUM
     Indication: PROPHYLAXIS
     Dosage: 5000 DF,UNK
     Route: 058
     Dates: start: 20170628, end: 20170702

REACTIONS (22)
  - Acute kidney injury [Recovered/Resolved]
  - Anxiety [Recovered/Resolved]
  - Eosinophilia [Recovered/Resolved]
  - Diarrhoea [Recovered/Resolved]
  - Mucosal inflammation [Unknown]
  - Haemorrhoids [Unknown]
  - Urinary incontinence [Recovered/Resolved]
  - Diverticulum intestinal [Recovering/Resolving]
  - Peripheral swelling [Recovered/Resolved]
  - Nausea [Recovered/Resolved]
  - Pruritus [Recovered/Resolved]
  - Blood immunoglobulin E increased [Recovered/Resolved]
  - Vomiting [Recovered/Resolved]
  - Hypokalaemia [Recovered/Resolved]
  - Hypersensitivity vasculitis [Recovered/Resolved]
  - Dry mouth [Recovered/Resolved]
  - Hypokalaemia [Recovered/Resolved]
  - Pruritus [Recovered/Resolved]
  - Joint swelling [Recovered/Resolved]
  - Hypomagnesaemia [Recovered/Resolved]
  - Angina pectoris [Recovered/Resolved]
  - Arthropod bite [Recovered/Resolved]

NARRATIVE: CASE EVENT DATE: 20170418
